FAERS Safety Report 9806367 (Version 1)
Quarter: 2014Q1

REPORT INFORMATION
  Report Type: Spontaneous
  Country: US (occurrence: US)
  Receive Date: 20140109
  Receipt Date: 20140109
  Transmission Date: 20141002
  Serious: Yes (Other)
  Sender: FDA-Public Use
  Company Number: US-RB-061688-14

PATIENT
  Age: 87 Year
  Sex: Female

DRUGS (2)
  1. MUCINEX DM [Suspect]
     Indication: PRODUCT USED FOR UNKNOWN INDICATION
     Dosage: PATIENT HAS BEEN TAKING MUCINEX DM FOR THE LAST 3 WEEKS.
     Route: 048
  2. ANTIBIOTICS [Concomitant]
     Indication: PRODUCT USED FOR UNKNOWN INDICATION

REACTIONS (4)
  - Hallucination [Not Recovered/Not Resolved]
  - Unresponsive to stimuli [Unknown]
  - Incorrect drug administration duration [Unknown]
  - Confusional state [Unknown]
